FAERS Safety Report 5671987-4 (Version None)
Quarter: 2008Q1

REPORT INFORMATION
  Report Type: 
  Country: None (occurrence: None)
  Receive Date: 20080318
  Receipt Date: 20080318
  Transmission Date: 20080703
  Serious: Yes (Hospitalization)
  Sender: FDA-Public Use
  Company Number: None

PATIENT
  Age: 63 Year
  Sex: Male
  Weight: 64.4 kg

DRUGS (1)
  1. ZOSYN [Suspect]
     Indication: PROPHYLAXIS
     Dosage: 3.375G EVERY 6 HOURS IVPB
     Route: 042
     Dates: start: 20071010, end: 20071011

REACTIONS (1)
  - THROMBOCYTOPENIA [None]
